FAERS Safety Report 5526452-1 (Version None)
Quarter: 2007Q4

REPORT INFORMATION
  Report Type: 
  Country: None (occurrence: None)
  Receive Date: 20071127
  Receipt Date: 20071116
  Transmission Date: 20080405
  Serious: Yes (Hospitalization)
  Sender: FDA-Public Use
  Company Number: DE-JNJFOC-20071105857

PATIENT
  Age: 51 Year
  Sex: Female

DRUGS (6)
  1. TAVANIC [Suspect]
     Indication: BRONCHITIS
     Route: 048
  2. BERLOSIN [Concomitant]
     Indication: PYREXIA
     Route: 065
  3. BERLOSIN [Concomitant]
     Indication: BRONCHITIS
     Route: 065
  4. BISOPROLOL FUMARATE [Concomitant]
     Indication: HYPERTENSION
     Route: 048
  5. PENICILLIN G [Concomitant]
     Indication: BRONCHITIS
     Route: 065
  6. DOXYCYCLINE [Concomitant]
     Indication: BRONCHITIS
     Route: 065

REACTIONS (4)
  - ANXIETY [None]
  - MUSCULAR WEAKNESS [None]
  - MYALGIA [None]
  - VISUAL DISTURBANCE [None]
